FAERS Safety Report 10389828 (Version 1)
Quarter: 2014Q3

REPORT INFORMATION
  Report Type: Spontaneous
  Country: FR (occurrence: FR)
  Receive Date: 20140818
  Receipt Date: 20140818
  Transmission Date: 20150326
  Serious: Yes (Hospitalization)
  Sender: FDA-Public Use
  Company Number: FR-ROCHE-1449240

PATIENT
  Age: 87 Year
  Sex: Female

DRUGS (3)
  1. PREVISCAN (FRANCE) [Interacting]
     Active Substance: FLUINDIONE
     Indication: ATRIAL FIBRILLATION
     Route: 048
  2. PREVISCAN (FRANCE) [Interacting]
     Active Substance: FLUINDIONE
     Route: 048
     Dates: start: 20140717
  3. ROCEPHINE [Suspect]
     Active Substance: CEFTRIAXONE SODIUM
     Indication: URINARY TRACT INFECTION
     Route: 042
     Dates: start: 20140711, end: 20140717

REACTIONS (3)
  - Drug interaction [Unknown]
  - Accidental overdose [Unknown]
  - International normalised ratio increased [Recovered/Resolved]

NARRATIVE: CASE EVENT DATE: 20140715
